FAERS Safety Report 6601737-6 (Version None)
Quarter: 2010Q1

REPORT INFORMATION
  Report Type: 
  Country: None (occurrence: None)
  Receive Date: 20100225
  Receipt Date: 20100217
  Transmission Date: 20100710
  Serious: Yes (Hospitalization)
  Sender: FDA-Public Use
  Company Number: US-SANOFI-AVENTIS-2010SA005204

PATIENT
  Age: 63 Year
  Sex: Female

DRUGS (3)
  1. OPTICLICK [Suspect]
     Indication: TYPE 2 DIABETES MELLITUS
  2. LANTUS [Suspect]
     Indication: TYPE 2 DIABETES MELLITUS
     Dosage: DOSE:60 UNIT(S)
     Route: 058
  3. LANTUS [Suspect]
     Dosage: DOSE:40 UNIT(S)
     Route: 058

REACTIONS (4)
  - BLOOD GLUCOSE DECREASED [None]
  - DYSPNOEA [None]
  - LETHARGY [None]
  - PRODUCT QUALITY ISSUE [None]
